FAERS Safety Report 23935479 (Version 1)
Quarter: 2024Q2

REPORT INFORMATION
  Report Type: Report from Study
  Country: CA (occurrence: CA)
  Receive Date: 20240604
  Receipt Date: 20240604
  Transmission Date: 20240715
  Serious: Yes (Other)
  Sender: FDA-Public Use
  Company Number: CA-002147023-NVSC2024CA114517

PATIENT
  Age: 41 Year

DRUGS (1)
  1. COSENTYX [Suspect]
     Active Substance: SECUKINUMAB
     Indication: Product used for unknown indication
     Dosage: UNK
     Route: 065
     Dates: start: 20240515

REACTIONS (4)
  - Groin abscess [Unknown]
  - Anal abscess [Unknown]
  - Subcutaneous abscess [Unknown]
  - Scar [Unknown]
